FAERS Safety Report 7435350-8 (Version None)
Quarter: 2011Q2

REPORT INFORMATION
  Report Type: 
  Country: None (occurrence: None)
  Receive Date: 20110425
  Receipt Date: 20110418
  Transmission Date: 20111010
  Serious: Yes (Other)
  Sender: FDA-Public Use
  Company Number: A0924246A

PATIENT
  Sex: Female

DRUGS (3)
  1. LANOXIN [Suspect]
     Dosage: .125MG UNKNOWN
     Route: 065
  2. EPIVIR-HBV [Suspect]
     Dosage: 100MG UNKNOWN
     Route: 065
  3. COREG [Suspect]
     Dosage: 25MG UNKNOWN
     Route: 065
     Dates: start: 20090501

REACTIONS (1)
  - COLON CANCER [None]
